FAERS Safety Report 21550880 (Version 2)
Quarter: 2022Q4

REPORT INFORMATION
  Report Type: Report from Study
  Country: US (occurrence: US)
  Receive Date: 20221103
  Receipt Date: 20221221
  Transmission Date: 20230113
  Serious: Yes (Other)
  Sender: FDA-Public Use
  Company Number: US-ABBVIE-4185506

PATIENT
  Age: 64 Year
  Sex: Female

DRUGS (2)
  1. HUMIRA [Suspect]
     Active Substance: ADALIMUMAB
     Indication: Rheumatoid arthritis
     Dosage: FORM STRENGTH: 40 MG/CITRATE FREE
     Route: 058
  2. Matrix [Concomitant]
     Indication: Product used for unknown indication

REACTIONS (5)
  - Knee arthroplasty [Recovering/Resolving]
  - Pain [Unknown]
  - Osteoarthritis [Unknown]
  - Walking aid user [Unknown]
  - Walking aid user [Unknown]

NARRATIVE: CASE EVENT DATE: 20221001
